FAERS Safety Report 6376794-5 (Version None)
Quarter: 2009Q3

REPORT INFORMATION
  Report Type: 
  Country: None (occurrence: None)
  Receive Date: 20090924
  Receipt Date: 20090924
  Transmission Date: 20100115
  Serious: Yes (Other)
  Sender: FDA-Public Use
  Company Number: None

PATIENT
  Age: 69 Year
  Sex: Female
  Weight: 77.1115 kg

DRUGS (2)
  1. LEXAPRO [Suspect]
     Indication: ANTIDEPRESSANT THERAPY
     Dosage: 10 MG ONCE A DAY TAB
     Dates: start: 20090831, end: 20090907
  2. CYMBALTA [Concomitant]

REACTIONS (5)
  - DEPRESSION [None]
  - DIABETIC NEUROPATHY [None]
  - IRRITABILITY [None]
  - PAIN [None]
  - TREATMENT FAILURE [None]
